FAERS Safety Report 5425005-3 (Version None)
Quarter: 2007Q3

REPORT INFORMATION
  Report Type: 
  Country: None (occurrence: None)
  Receive Date: 20070822
  Receipt Date: 20070807
  Transmission Date: 20080115
  Serious: Yes (Hospitalization)
  Sender: FDA-Public Use
  Company Number: 2007S1006642

PATIENT
  Age: 60 Year
  Sex: Male
  Weight: 94.5 kg

DRUGS (23)
  1. ALLOPURINOL TAB [Suspect]
     Indication: BLOOD URIC ACID
     Dosage: DAILY; ORAL
     Route: 048
     Dates: start: 20070413, end: 20070529
  2. ALLOPURINOL TAB [Suspect]
     Indication: GOUT
     Dosage: DAILY; ORAL
     Route: 048
     Dates: start: 20070413, end: 20070529
  3. LANTUS [Suspect]
     Indication: TYPE 2 DIABETES MELLITUS
     Dosage: 30 UNITS; SUBCUTANEOUS; 50 UNITS; SUBCUTANEOUS; 50 UNITS; SUBCUTANEOUS
     Route: 058
     Dates: start: 20070520, end: 20070501
  4. LANTUS [Suspect]
     Indication: TYPE 2 DIABETES MELLITUS
     Dosage: 30 UNITS; SUBCUTANEOUS; 50 UNITS; SUBCUTANEOUS; 50 UNITS; SUBCUTANEOUS
     Route: 058
     Dates: start: 20060101, end: 20070519
  5. LANTUS [Suspect]
     Indication: TYPE 2 DIABETES MELLITUS
     Dosage: 30 UNITS; SUBCUTANEOUS; 50 UNITS; SUBCUTANEOUS; 50 UNITS; SUBCUTANEOUS
     Route: 058
     Dates: start: 20070601
  6. APIDRA [Suspect]
     Indication: TYPE 2 DIABETES MELLITUS
     Dosage: SUBCUTANEOUS
     Route: 058
  7. VALSARTAN [Concomitant]
  8. ATENOLOL [Concomitant]
  9. CLONIDINE [Concomitant]
  10. CLONAZEPAM [Concomitant]
  11. PREGABALIN [Concomitant]
  12. METOLAZONE [Concomitant]
  13. REGULAR INSULIN [Concomitant]
  14. GEMFIBROZIL [Concomitant]
  15. RENAGEL /01459901/ [Concomitant]
  16. SODIUM BICARBONATE [Concomitant]
  17. FUROSEMIDE [Concomitant]
  18. METANX [Concomitant]
  19. MULTI-VIT [Concomitant]
  20. STRESS B [Concomitant]
  21. VITAMIN B6 [Concomitant]
  22. ZINC [Concomitant]
  23. ALPHA LIPOIC ACID [Concomitant]

REACTIONS (8)
  - BLOOD URINE PRESENT [None]
  - CHILLS [None]
  - DIARRHOEA [None]
  - DRUG HYPERSENSITIVITY [None]
  - MALAISE [None]
  - PYREXIA [None]
  - RASH [None]
  - WHITE BLOOD CELL COUNT DECREASED [None]
